FAERS Safety Report 15326409 (Version 1)
Quarter: 2018Q3

REPORT INFORMATION
  Report Type: Spontaneous
  Country: US (occurrence: US)
  Receive Date: 20180828
  Receipt Date: 20180828
  Transmission Date: 20181010
  Serious: No
  Sender: FDA-Public Use
  Company Number: US-SA-2018SA239308

PATIENT
  Age: 72 Year
  Sex: Female

DRUGS (3)
  1. ZYRTEK [Concomitant]
     Active Substance: CETIRIZINE HYDROCHLORIDE
  2. NASACORT ALLERGY 24HR [Suspect]
     Active Substance: TRIAMCINOLONE ACETONIDE
     Dosage: 55 UG, QD
     Dates: start: 201808
  3. FLONASE [MOMETASONE FUROATE] [Concomitant]

REACTIONS (1)
  - Cough [Unknown]
